FAERS Safety Report 13059292 (Version 2)
Quarter: 2019Q1

REPORT INFORMATION
  Report Type: Spontaneous
  Country: US (occurrence: US)
  Receive Date: 20161223
  Receipt Date: 20190108
  Transmission Date: 20190417
  Serious: No
  Sender: FDA-Public Use
  Company Number: US-BAUSCH-BL-2016-023044

PATIENT
  Sex: Female

DRUGS (4)
  1. XENAZINE [Suspect]
     Active Substance: TETRABENAZINE
     Dosage: ONE TABLET IN MORNING AND ONE TABLET IN EVENING
     Route: 048
     Dates: start: 201405
  2. XENAZINE [Suspect]
     Active Substance: TETRABENAZINE
     Route: 048
  3. XENAZINE [Suspect]
     Active Substance: TETRABENAZINE
     Indication: HUNTINGTON^S DISEASE
     Route: 048
  4. XENAZINE [Suspect]
     Active Substance: TETRABENAZINE
     Route: 048
     Dates: start: 201608

REACTIONS (9)
  - Abdominal discomfort [Not Recovered/Not Resolved]
  - Vomiting [Recovered/Resolved]
  - Eating disorder [Unknown]
  - Sedation [Not Recovered/Not Resolved]
  - Product dose omission [Unknown]
  - Treatment noncompliance [Unknown]
  - Wrong technique in product usage process [Unknown]
  - Hypersomnia [Unknown]
  - Abnormal behaviour [Recovered/Resolved]

NARRATIVE: CASE EVENT DATE: 2014
